FAERS Safety Report 24977233 (Version 1)
Quarter: 2025Q1

REPORT INFORMATION
  Report Type: Spontaneous
  Country: GB (occurrence: GB)
  Receive Date: 20250217
  Receipt Date: 20250217
  Transmission Date: 20250409
  Serious: Yes (Hospitalization, Other)
  Sender: SANOFI AVENTIS
  Company Number: GB-SA-2025SA044027

PATIENT
  Age: 26 Year
  Sex: Male

DRUGS (4)
  1. DUPIXENT [Suspect]
     Active Substance: DUPILUMAB
     Indication: Dermatitis atopic
     Dosage: 300 MG, QOW (FORTNIGHTLY)
     Route: 065
     Dates: start: 20230123
  2. LYMECYCLINE [Concomitant]
     Active Substance: LYMECYCLINE
     Indication: Hidradenitis
     Dates: start: 20210913
  3. DAPSONE [Concomitant]
     Active Substance: DAPSONE
     Indication: Hidradenitis
     Dates: start: 20230317, end: 20240208
  4. FOLIC ACID [Concomitant]
     Active Substance: FOLIC ACID
     Indication: Adverse drug reaction
     Dates: start: 20230311

REACTIONS (1)
  - Henoch-Schonlein purpura [Recovered/Resolved]

NARRATIVE: CASE EVENT DATE: 20240329
